FAERS Safety Report 21942435 (Version 1)
Quarter: 2023Q1

REPORT INFORMATION
  Report Type: Report from Study
  Country: US (occurrence: US)
  Receive Date: 20230202
  Receipt Date: 20230202
  Transmission Date: 20230417
  Serious: No
  Sender: FDA-Public Use
  Company Number: US-EXELIXIS-CABO-22057624

PATIENT
  Sex: Male

DRUGS (1)
  1. CABOMETYX [Suspect]
     Active Substance: CABOZANTINIB S-MALATE
     Indication: Kaposi^s sarcoma
     Dosage: 40 MG, QD
     Route: 048
     Dates: start: 20221013

REACTIONS (6)
  - Gingivitis [Unknown]
  - Tinea pedis [Unknown]
  - Skin ulcer [Unknown]
  - Alopecia [Unknown]
  - Rash [Unknown]
  - Off label use [Unknown]
